FAERS Safety Report 16822313 (Version 2)
Quarter: 2019Q4

REPORT INFORMATION
  Report Type: Spontaneous
  Country: US (occurrence: US)
  Receive Date: 20190918
  Receipt Date: 20191010
  Transmission Date: 20200122
  Serious: No
  Sender: FDA-Public Use
  Company Number: US-PFIZER INC-2019397451

PATIENT
  Sex: Female

DRUGS (10)
  1. ACIDOPHILUS PROBIOTIC [Concomitant]
     Dosage: UNK
  2. NEXIUM I.V. [Concomitant]
     Active Substance: ESOMEPRAZOLE SODIUM
     Indication: BILE ACID MALABSORPTION
     Dosage: 40 MG, 2X/DAY(1 AM AND1 PM )
  3. CLIMARA [Concomitant]
     Active Substance: ESTRADIOL
     Indication: HORMONE THERAPY
     Dosage: 0.05 MG, (0.05 MG 1 EVERY 5 DAYS)
  4. LACTULOSE. [Concomitant]
     Active Substance: LACTULOSE
     Indication: CONSTIPATION
     Dosage: 2X/DAY
  5. XANAX [Concomitant]
     Active Substance: ALPRAZOLAM
     Indication: ANXIETY
     Dosage: 2 DF, 4X/DAY
  6. ASPIR 81 [Concomitant]
     Active Substance: ASPIRIN
     Indication: VERTIGO
     Dosage: 1 DF, DAILY
  7. CALCIUM + VITAMIN D3 [Concomitant]
     Active Substance: CALCIUM CARBONATE\CHOLECALCIFEROL
     Dosage: (1200 MG)
  8. VERAPAMIL HCL [Suspect]
     Active Substance: VERAPAMIL HYDROCHLORIDE
     Indication: HYPERTENSION
     Dosage: 240 MG, 2X/DAY (1 AM AND 1 PM )
  9. MAPROTILINE [Concomitant]
     Active Substance: MAPROTILINE
     Indication: DEPRESSION
     Dosage: 50 MG, 2X/DAY (2 AM AND 2 PM)
  10. RESTASIS [Concomitant]
     Active Substance: CYCLOSPORINE
     Indication: DRY EYE
     Dosage: 2 GTT, 2X/DAY(1 DROP EACH EYE AM AND PM)

REACTIONS (5)
  - Drug hypersensitivity [Unknown]
  - Chest pain [Unknown]
  - Musculoskeletal pain [Unknown]
  - Dyspnoea [Unknown]
  - Drug ineffective [Unknown]
